FAERS Safety Report 9447994 (Version 3)
Quarter: 2014Q1

REPORT INFORMATION
  Report Type: Report from Study
  Country: NZ (occurrence: NZ)
  Receive Date: 20130808
  Receipt Date: 20140205
  Transmission Date: 20141002
  Serious: Yes (Disabling, Other)
  Sender: FDA-Public Use
  Company Number: PHHY2012NZ102981

PATIENT
  Age: 27 Year
  Sex: Male

DRUGS (14)
  1. CLOZARIL [Suspect]
     Indication: BIPOLAR DISORDER
     Dosage: UNK
     Dates: start: 20090219
  2. CLOZARIL [Suspect]
     Dosage: 300 MG, NOCTE
     Route: 048
  3. CLOZARIL [Suspect]
     Dosage: 50 MG, NOCTE
     Route: 048
     Dates: start: 20130429
  4. CLOZARIL [Suspect]
     Dosage: 150 MG, NOCTE
     Route: 048
     Dates: end: 20130715
  5. CLOZARIL [Suspect]
     Dosage: 25 MG, NOCTE
     Route: 048
     Dates: start: 20131031
  6. CLOZARIL [Suspect]
     Dosage: 300 MG, NOCTE
     Route: 048
     Dates: start: 20131101
  7. CLOZARIL [Suspect]
     Dosage: 150 MG, NOCTE
     Route: 048
  8. AMISULPRIDE [Concomitant]
     Indication: PSYCHOTIC DISORDER
     Dosage: UNK
     Route: 048
     Dates: start: 20120419
  9. AMISULPRIDE [Concomitant]
     Dosage: 300 MG, NOCTE
     Route: 048
     Dates: start: 20120419
  10. AMISULPRIDE [Concomitant]
     Dosage: 300 MG, NOCTE
     Route: 048
     Dates: end: 20131212
  11. SODIUM VALPROATE [Concomitant]
     Indication: AFFECTIVE DISORDER
     Dosage: 500 MG, MANE
     Route: 048
  12. SODIUM VALPROATE [Concomitant]
     Dosage: 1200 MG, NOCTE
     Route: 048
  13. METOPROLOL [Concomitant]
     Dosage: 23.75 MG, MANE
     Route: 048
  14. RISPERIDONE [Concomitant]
     Dosage: 3 MG, NOCTE
     Route: 048

REACTIONS (7)
  - Salivary hypersecretion [Not Recovered/Not Resolved]
  - Drooling [Unknown]
  - Retrograde ejaculation [Unknown]
  - Vision blurred [Unknown]
  - Bipolar disorder [Unknown]
  - Sedation [Unknown]
  - Fatigue [Unknown]
